FAERS Safety Report 8358839-6 (Version None)
Quarter: 2012Q2

REPORT INFORMATION
  Report Type: 
  Country: None (occurrence: None)
  Receive Date: 20120515
  Receipt Date: 20120510
  Transmission Date: 20120825
  Serious: Yes (Death, Other)
  Sender: FDA-Public Use
  Company Number: US-AMGEN-USASP2012012967

PATIENT
  Age: 73 Year
  Sex: Female
  Weight: 82 kg

DRUGS (15)
  1. NIACIN [Concomitant]
  2. NPLATE [Suspect]
     Indication: AUTOIMMUNE THROMBOCYTOPENIA
     Dosage: 2 MUG/KG, UNK
     Route: 058
     Dates: start: 20120103, end: 20120103
  3. RANITIDINE [Concomitant]
  4. FUROSEMIDE [Concomitant]
  5. GLIPIZIDE [Concomitant]
  6. PREDNISONE [Concomitant]
     Dosage: 60 MG, QD
  7. ENALAPRIL MALEATE [Concomitant]
  8. DOCUSATE [Concomitant]
  9. NOVOLIN 70/30 [Concomitant]
  10. SIMVASTATIN [Concomitant]
  11. SINGULAIR [Concomitant]
  12. REGULAR INSULIN [Concomitant]
  13. AMLODIPINE BESYLATE [Concomitant]
  14. CARVEDILOL [Concomitant]
  15. LEVOTHYROXINE SODIUM [Concomitant]

REACTIONS (7)
  - PAIN [None]
  - MYOCARDIAL ISCHAEMIA [None]
  - DEATH [None]
  - MYALGIA [None]
  - DIABETES MELLITUS INADEQUATE CONTROL [None]
  - HEADACHE [None]
  - INTESTINAL ISCHAEMIA [None]
